FAERS Safety Report 14919248 (Version 1)
Quarter: 2018Q2

REPORT INFORMATION
  Report Type: Spontaneous
  Country: JP (occurrence: JP)
  Receive Date: 20180521
  Receipt Date: 20180521
  Transmission Date: 20180711
  Serious: Yes (Death)
  Sender: FDA-Public Use
  Company Number: JP-PFIZER INC-2018206782

PATIENT
  Age: 79 Year
  Sex: Female
  Weight: 52.7 kg

DRUGS (7)
  1. MEROPENEM. [Suspect]
     Active Substance: MEROPENEM
     Indication: PULMONARY THROMBOSIS
  2. CEFTAZIDIME. [Suspect]
     Active Substance: CEFTAZIDIME
     Indication: LUNG INFECTION
     Dosage: 3 G, DAILY
  3. PREDNISOLONE. [Concomitant]
     Active Substance: PREDNISOLONE
     Dosage: UNK
  4. METRONIDAZOLE. [Concomitant]
     Active Substance: METRONIDAZOLE
     Indication: PSEUDOMEMBRANOUS COLITIS
     Dosage: UNK
     Route: 048
  5. SULFAMETHOXAZOLE AND TRIMETHOPRIM [Concomitant]
     Active Substance: SULFAMETHOXAZOLE\TRIMETHOPRIM
     Dosage: UNK
  6. CEFTAZIDIME. [Suspect]
     Active Substance: CEFTAZIDIME
     Indication: PULMONARY THROMBOSIS
  7. MEROPENEM. [Suspect]
     Active Substance: MEROPENEM
     Indication: LUNG INFECTION
     Dosage: 3 G, DAILY

REACTIONS (1)
  - Drug ineffective [Fatal]
